FAERS Safety Report 14574414 (Version 1)
Quarter: 2018Q1

REPORT INFORMATION
  Report Type: Spontaneous
  Country: DE (occurrence: DE)
  Receive Date: 20180226
  Receipt Date: 20180226
  Transmission Date: 20180509
  Serious: Yes (Congenital Anomaly, Other)
  Sender: FDA-Public Use
  Company Number: PHHY2018DE031340

PATIENT
  Age: 1 Day
  Sex: Male
  Weight: 2.54 kg

DRUGS (3)
  1. CANDESARTAN CILEXETIL. [Concomitant]
     Active Substance: CANDESARTAN CILEXETIL
     Indication: HYPERTENSION
     Dosage: 16 [MG/D ]
     Route: 064
  2. FOLSAEURE [Concomitant]
     Active Substance: FOLIC ACID
     Indication: VITAMIN SUPPLEMENTATION
     Route: 064
  3. METOHEXAL [Suspect]
     Active Substance: METOPROLOL SUCCINATE
     Indication: HYPERTENSION
     Dosage: 95 [MG/D (2X47.5) ]
     Route: 064
     Dates: start: 20160320, end: 20170102

REACTIONS (4)
  - Patent ductus arteriosus [Recovered/Resolved with Sequelae]
  - Atrial septal defect [Recovered/Resolved]
  - Small for dates baby [Unknown]
  - Foetal exposure during pregnancy [Unknown]

NARRATIVE: CASE EVENT DATE: 20170102
